FAERS Safety Report 4889428-3 (Version None)
Quarter: 2006Q1

REPORT INFORMATION
  Report Type: 
  Country: None (occurrence: None)
  Receive Date: 20060120
  Receipt Date: 20060120
  Transmission Date: 20060701
  Serious: Yes (Other)
  Sender: FDA-Public Use
  Company Number: None

PATIENT
  Sex: Female
  Weight: 57.8336 kg

DRUGS (1)
  1. VENOFER [Suspect]
     Indication: IRON DEFICIENCY ANAEMIA
     Dosage: 300MG
     Dates: start: 20060116

REACTIONS (3)
  - INFUSION RELATED REACTION [None]
  - OEDEMA PERIPHERAL [None]
  - PARAESTHESIA [None]
